FAERS Safety Report 11213321 (Version 1)
Quarter: 2015Q2

REPORT INFORMATION
  Report Type: Spontaneous
  Country: US (occurrence: US)
  Receive Date: 20150623
  Receipt Date: 20150623
  Transmission Date: 20150821
  Serious: No
  Sender: FDA-Public Use
  Company Number: US-BAYER-2015-361302

PATIENT
  Age: 88 Year
  Sex: Male
  Weight: 86 kg

DRUGS (12)
  1. FISH OIL [Concomitant]
     Active Substance: FISH OIL
  2. PIOGLITAZONE [Concomitant]
     Active Substance: PIOGLITAZONE
  3. NIACIN. [Concomitant]
     Active Substance: NIACIN
  4. JANUVIA [Concomitant]
     Active Substance: SITAGLIPTIN PHOSPHATE
  5. GLIPIZIDE. [Concomitant]
     Active Substance: GLIPIZIDE
  6. KEPPRA [Concomitant]
     Active Substance: LEVETIRACETAM
  7. MIRALAX [Suspect]
     Active Substance: POLYETHYLENE GLYCOL 3350
     Indication: CONSTIPATION
     Dosage: 1 DF, UNK
     Route: 048
     Dates: start: 201410
  8. TORSEMIDE. [Concomitant]
     Active Substance: TORSEMIDE
  9. BAYER LOW DOSE [Concomitant]
     Active Substance: ASPIRIN
     Indication: ISCHAEMIC HEART DISEASE PROPHYLAXIS
  10. GLUCOSAMINE [Concomitant]
     Active Substance: GLUCOSAMINE
  11. LIPITOR [Concomitant]
     Active Substance: ATORVASTATIN CALCIUM
  12. METFORMIN [Concomitant]
     Active Substance: METFORMIN HYDROCHLORIDE

REACTIONS (2)
  - Incorrect drug administration duration [Recovered/Resolved]
  - Diarrhoea [Recovered/Resolved]

NARRATIVE: CASE EVENT DATE: 201410
